FAERS Safety Report 15516940 (Version 1)
Quarter: 2018Q4

REPORT INFORMATION
  Report Type: Report from Study
  Country: CR (occurrence: CR)
  Receive Date: 20181017
  Receipt Date: 20181017
  Transmission Date: 20190205
  Serious: Yes (Other)
  Sender: FDA-Public Use
  Company Number: CR-GLAXOSMITHKLINE-CR2018187007

PATIENT
  Age: 61 Year
  Sex: Female

DRUGS (6)
  1. SECUKINUMAB. [Suspect]
     Active Substance: SECUKINUMAB
     Dosage: 150 MG, UNK
     Route: 058
     Dates: start: 20180126
  2. DICLOFENAC [Suspect]
     Active Substance: DICLOFENAC
     Indication: ARTHRALGIA
     Dosage: UNK
     Route: 065
  3. LANSOPRAZOLE. [Concomitant]
     Active Substance: LANSOPRAZOLE
     Indication: ABDOMINAL PAIN UPPER
     Dosage: 1 DF, QD
     Route: 065
  4. SECUKINUMAB. [Suspect]
     Active Substance: SECUKINUMAB
     Indication: SERONEGATIVE ARTHRITIS
     Dosage: 150 MG, EVERY 15 DAYS
     Route: 058
  5. GLUCOSAMINE + CHONDROITIN [Concomitant]
     Active Substance: CHONDROITIN SULFATE (BOVINE)\GLUCOSAMINE HYDROCHLORIDE
     Indication: ARTHRITIS
     Dosage: UNK
     Route: 065
  6. IBUPROFEN. [Concomitant]
     Active Substance: IBUPROFEN
     Indication: ARTHRALGIA
     Dosage: UNK
     Route: 065

REACTIONS (25)
  - Bone pain [Unknown]
  - Headache [Unknown]
  - Concomitant disease aggravated [Unknown]
  - Infertility female [Unknown]
  - Varicose vein [Unknown]
  - Arthralgia [Unknown]
  - Secretion discharge [Recovering/Resolving]
  - Product use in unapproved indication [Unknown]
  - Arthritis [Unknown]
  - Joint dislocation [Unknown]
  - Abdominal pain upper [Unknown]
  - Accident [Unknown]
  - Femur fracture [Unknown]
  - Onychomycosis [Unknown]
  - Alopecia [Unknown]
  - Ligament sprain [Unknown]
  - Cough [Recovering/Resolving]
  - Rhinitis [Recovering/Resolving]
  - Osteoarthritis [Unknown]
  - Arthropathy [Unknown]
  - Throat irritation [Unknown]
  - Intervertebral disc disorder [Unknown]
  - Cartilage injury [Unknown]
  - Decreased immune responsiveness [Unknown]
  - Skin lesion [Unknown]
